FAERS Safety Report 14046969 (Version 5)
Quarter: 2017Q4

REPORT INFORMATION
  Report Type: Spontaneous
  Country: US (occurrence: US)
  Receive Date: 20171005
  Receipt Date: 20171023
  Transmission Date: 20180321
  Serious: Yes (Hospitalization, Other)
  Sender: FDA-Public Use
  Company Number: US-GLAXOSMITHKLINE-US2017GSK153016

PATIENT
  Age: 61 Year
  Sex: Female

DRUGS (6)
  1. FLOLAN [Suspect]
     Active Substance: EPOPROSTENOL SODIUM
     Indication: PULMONARY HYPERTENSION
     Dosage: UNK
     Dates: start: 20170216
  2. SILDENAFIL CITRATE. [Concomitant]
     Active Substance: SILDENAFIL CITRATE
  3. COUMADIN [Concomitant]
     Active Substance: WARFARIN SODIUM
  4. FLOLAN [Suspect]
     Active Substance: EPOPROSTENOL SODIUM
     Indication: PULMONARY HYPERTENSION
     Dosage: 23 DF, CO
     Dates: start: 20131028
  5. LETAIRIS [Concomitant]
     Active Substance: AMBRISENTAN
  6. FLOLAN [Suspect]
     Active Substance: EPOPROSTENOL SODIUM
     Dosage: 19 DF, CO

REACTIONS (6)
  - Vein collapse [Unknown]
  - Haemoptysis [Unknown]
  - Peripheral swelling [Unknown]
  - Transplant [Unknown]
  - Contusion [Unknown]
  - Pain in extremity [Unknown]

NARRATIVE: CASE EVENT DATE: 201709
